FAERS Safety Report 5507192-1 (Version None)
Quarter: 2007Q4

REPORT INFORMATION
  Report Type: 
  Country: None (occurrence: None)
  Receive Date: 20071102
  Receipt Date: 20071024
  Transmission Date: 20080405
  Serious: Yes (Hospitalization, Other)
  Sender: FDA-Public Use
  Company Number: 2007SP018881

PATIENT
  Age: 32 Year
  Sex: Male

DRUGS (5)
  1. PEG-INTRON [Suspect]
     Indication: HEPATITIS C
     Dosage: ; SC
     Route: 058
     Dates: start: 20070821
  2. RIBAVIRIN [Suspect]
     Indication: HEPATITIS C
     Dosage: ; PO
     Route: 048
     Dates: start: 20070821
  3. CELEXA [Concomitant]
  4. ZANTAC [Concomitant]
  5. KEPPRA [Concomitant]

REACTIONS (19)
  - AGGRESSION [None]
  - AMMONIA INCREASED [None]
  - ANGER [None]
  - ANXIETY [None]
  - BALANCE DISORDER [None]
  - CONVULSION [None]
  - DIZZINESS [None]
  - DYSPEPSIA [None]
  - DYSPNOEA [None]
  - HYPOAESTHESIA [None]
  - INJECTION SITE ULCER [None]
  - INTENTIONAL SELF-INJURY [None]
  - LACERATION [None]
  - LOSS OF CONSCIOUSNESS [None]
  - MEMORY IMPAIRMENT [None]
  - MIDDLE INSOMNIA [None]
  - NASAL ULCER [None]
  - NAUSEA [None]
  - SCRATCH [None]
